FAERS Safety Report 6688289-X (Version None)
Quarter: 2010Q2

REPORT INFORMATION
  Report Type: 
  Country: None (occurrence: None)
  Receive Date: 20100420
  Receipt Date: 20100408
  Transmission Date: 20101027
  Serious: Yes (Hospitalization)
  Sender: FDA-Public Use
  Company Number: FR-ROCHE-696528

PATIENT
  Sex: Male

DRUGS (17)
  1. AVASTIN [Suspect]
     Route: 042
     Dates: start: 20090525, end: 20091005
  2. CAMPTOSAR [Suspect]
     Route: 042
     Dates: start: 20090525, end: 20091005
  3. FLUOROURACIL [Suspect]
     Dosage: DRUG NAME: FLUOROURACILE
     Route: 042
     Dates: start: 20090525, end: 20091005
  4. CALCIUM LEVOFOLINATE [Suspect]
     Dosage: DRUG NAME: LEVOFOLINATE DE CALCIUM
     Route: 042
     Dates: start: 20090525, end: 20091005
  5. SOLU-MEDROL [Suspect]
     Route: 042
     Dates: start: 20090525, end: 20091005
  6. ZOPHREN [Suspect]
     Indication: DRUG USE FOR UNKNOWN INDICATION
     Route: 042
     Dates: start: 20090525, end: 20091005
  7. ATROPINE SULFATE [Suspect]
     Route: 058
     Dates: start: 20090525, end: 20091005
  8. EMEND [Suspect]
     Dosage: 125 MG ON DAY 1 THEN 80 MG FROM DAY 2 TO DAY 3
     Route: 048
     Dates: start: 20090525, end: 20091005
  9. ZOLPIDEM [Concomitant]
     Dosage: ONE DOSE IN THE EVENING
  10. DEROXAT [Concomitant]
     Dosage: DRUG NAME: DEROXAT 20; ONE DOSE DAILY
  11. DIFFU-K [Concomitant]
     Dosage: TWO DOSES IN MORNING, TWO DOSES AT LUNCH TIME AND TWO DOSES IN EVENING
  12. ACETAMINOPHEN [Concomitant]
     Dosage: DRUG NAME: PARALYOC 500
  13. TIORFAN [Concomitant]
     Dosage: ONE DOSE THRICE DAILY
  14. VOGALENE LYOC [Concomitant]
     Dosage: ONE DOSE THRICE DAILY
  15. DEBRIDAT [Concomitant]
     Dosage: FORM: SACHETS
  16. CREON [Concomitant]
     Dosage: DRUG NAME: CREON 25000; TWO DOSES DAILY
  17. IMODIUM [Concomitant]
     Dosage: THREE DOSES DAILY

REACTIONS (3)
  - ASTHENIA [None]
  - HEADACHE [None]
  - PARAESTHESIA [None]
